FAERS Safety Report 21964158 (Version 1)
Quarter: 2023Q1

REPORT INFORMATION
  Report Type: Spontaneous
  Country: US (occurrence: US)
  Receive Date: 20230207
  Receipt Date: 20230207
  Transmission Date: 20230417
  Serious: No
  Sender: FDA-Public Use
  Company Number: US-PFIZER INC-202201400309

PATIENT
  Age: 56 Year
  Sex: Female
  Weight: 72.57 kg

DRUGS (1)
  1. COLESTIPOL HYDROCHLORIDE [Suspect]
     Active Substance: COLESTIPOL HYDROCHLORIDE
     Dosage: 5 G, 2X/DAY (MORNING AND NIGHT BY MOUTH; MIX WITH DRINK)
     Route: 048
     Dates: start: 20221219

REACTIONS (3)
  - Product packaging issue [Unknown]
  - Product leakage [Unknown]
  - Accidental exposure to product [Unknown]

NARRATIVE: CASE EVENT DATE: 20221228
